FAERS Safety Report 12275918 (Version 1)
Quarter: 2016Q2

REPORT INFORMATION
  Report Type: Spontaneous
  Country: None (occurrence: None)
  Receive Date: 20160415
  Receipt Date: 20160415
  Transmission Date: 20160815
  Serious: No
  Sender: FDA-Public Use
  Company Number: None

PATIENT
  Age: 45 Year
  Sex: Male

DRUGS (1)
  1. NORVIR [Suspect]
     Active Substance: RITONAVIR

REACTIONS (1)
  - Libido decreased [None]

NARRATIVE: CASE EVENT DATE: 20151101
